FAERS Safety Report 14243615 (Version 1)
Quarter: 2017Q4

REPORT INFORMATION
  Report Type: Spontaneous
  Country: US (occurrence: US)
  Receive Date: 20171201
  Receipt Date: 20171201
  Transmission Date: 20180321
  Serious: Yes (Death, Hospitalization, Other)
  Sender: FDA-Public Use
  Company Number: US-MYLANLABS-2017M1075940

PATIENT
  Age: 33 Year
  Sex: Male

DRUGS (2)
  1. VALPROIC ACID. [Suspect]
     Active Substance: VALPROIC ACID
     Indication: PRODUCT USED FOR UNKNOWN INDICATION
     Dosage: UNK
     Route: 065
  2. HEROIN [Suspect]
     Active Substance: DIAMORPHINE
     Indication: PRODUCT USED FOR UNKNOWN INDICATION
     Dosage: UNK
     Route: 065

REACTIONS (10)
  - Hypotension [Fatal]
  - Acute respiratory distress syndrome [Fatal]
  - Pneumonia aspiration [Fatal]
  - Bradycardia [Fatal]
  - Depressed level of consciousness [Fatal]
  - Coma [Fatal]
  - Toxicity to various agents [Fatal]
  - Ventricular arrhythmia [Fatal]
  - Acute lung injury [Fatal]
  - Respiratory depression [Fatal]
